FAERS Safety Report 10674583 (Version 1)
Quarter: 2014Q4

REPORT INFORMATION
  Report Type: Spontaneous
  Country: US (occurrence: US)
  Receive Date: 20141224
  Receipt Date: 20141224
  Transmission Date: 20150529
  Serious: Yes (Hospitalization, Other)
  Sender: FDA-Public Use
  Company Number: US-B.I. PHARMACEUTICALS,INC./RIDGEFIELD-2014-BI-61483BP

PATIENT
  Age: 76 Year
  Sex: Male
  Weight: 92.99 kg

DRUGS (26)
  1. CLARITIN [Concomitant]
     Active Substance: LORATADINE
     Indication: HYPERSENSITIVITY
     Dosage: 20 MG
     Route: 048
  2. FLONASE [Concomitant]
     Active Substance: FLUTICASONE PROPIONATE
     Indication: HYPERSENSITIVITY
     Dosage: FORMULATION: NASAL SPRAY
     Route: 045
  3. ASELIN [Concomitant]
     Indication: HYPERSENSITIVITY
     Dosage: FORMULATION: NASAL SPRAY
     Route: 045
  4. ALEVE [Concomitant]
     Active Substance: NAPROXEN SODIUM
     Indication: PAIN
     Route: 048
  5. IBUPROFEN. [Concomitant]
     Active Substance: IBUPROFEN
     Indication: PAIN
     Route: 048
  6. PYRIDIUM [Concomitant]
     Active Substance: PHENAZOPYRIDINE
     Indication: BLADDER DISORDER
     Dosage: 600 MG
     Route: 048
  7. NITROFURANTOIN. [Concomitant]
     Active Substance: NITROFURANTOIN
     Indication: URINARY TRACT INFECTION
     Route: 048
  8. CALCIUM WITH VITAMIN D [Concomitant]
     Active Substance: CALCIUM\VITAMIN D
     Indication: SUPPLEMENTATION THERAPY
     Dosage: 600 MG
     Route: 048
  9. ZETIA [Concomitant]
     Active Substance: EZETIMIBE
     Indication: BLOOD CHOLESTEROL INCREASED
     Dosage: 10 MG
     Route: 048
  10. ARTIFICAL TEARS [Concomitant]
     Active Substance: GLYCERIN\HYPROMELLOSE 2910 (15 MPA.S)\POLYETHYLENE GLYCOL 400\PROPYLENE GLYCOL
     Indication: DRY EYE
     Dosage: DOSE PER APPLICATION:8 OZ; DAILY DOSE: .16 OZ
     Route: 065
  11. COENZYME Q10 [Concomitant]
     Active Substance: UBIDECARENONE
     Indication: MUSCLE OPERATION
     Dosage: 100 MG
     Route: 048
  12. ACYCLOVIR. [Concomitant]
     Active Substance: ACYCLOVIR
     Indication: PRURITUS
     Route: 048
  13. ASPIRIN. [Concomitant]
     Active Substance: ASPIRIN
     Indication: BLOOD CHOLESTEROL INCREASED
     Dosage: 81 MG
     Route: 048
  14. METRONIDAZOLE. [Concomitant]
     Active Substance: METRONIDAZOLE
     Indication: RASH
     Dosage: DOSE PER APPLICATION : 0.75%
     Route: 061
  15. CYCLOSPORINE. [Concomitant]
     Active Substance: CYCLOSPORINE
     Indication: DRY EYE
     Dosage: FORMULATION : OINTMENT, DOSE PER APPLICATION : 0.05; DAILY DOSE: 0.20
     Route: 065
  16. CELEXA [Concomitant]
     Active Substance: CITALOPRAM HYDROBROMIDE
     Indication: DEPRESSION
     Dosage: 40 MG
     Route: 048
  17. CAPSAICIN. [Concomitant]
     Active Substance: CAPSAICIN
     Indication: ARTHRITIS
     Route: 061
  18. FISH OIL [Concomitant]
     Active Substance: FISH OIL
     Indication: BLOOD CHOLESTEROL INCREASED
     Dosage: 4000 MG
     Route: 048
  19. CHONDROITIN [Concomitant]
     Active Substance: CHONDROITIN
     Indication: SUPPLEMENTATION THERAPY
     Route: 048
  20. LIVALO [Concomitant]
     Active Substance: PITAVASTATIN CALCIUM
     Indication: BLOOD CHOLESTEROL INCREASED
     Dosage: 2 MG
     Route: 048
  21. SPIRIVA [Suspect]
     Active Substance: TIOTROPIUM BROMIDE MONOHYDRATE
     Indication: CHRONIC OBSTRUCTIVE PULMONARY DISEASE
     Dosage: 18 MCG
     Route: 055
     Dates: start: 2008, end: 201408
  22. CLOBETASOL PROPIONATE. [Concomitant]
     Active Substance: CLOBETASOL PROPIONATE
     Indication: RASH
     Dosage: DOSE PER APPLICATION: 0.05
     Route: 061
  23. BACTROBAN [Concomitant]
     Active Substance: MUPIROCIN\MUPIROCIN CALCIUM
     Indication: RASH
     Dosage: FORMULATION : OINTMENT, DOSE PER APPLICATION : 2%
     Route: 061
  24. REFRESH TEARS [Concomitant]
     Active Substance: CARBOXYMETHYLCELLULOSE SODIUM
     Indication: DRY EYE
     Dosage: DOSE PER APPLICATION: 0.5%; DAILY DOSE: 1.0%
     Route: 065
  25. CENTRUM [Concomitant]
     Active Substance: VITAMINS
     Indication: SUPPLEMENTATION THERAPY
     Dosage: 1 ANZ
     Route: 048
  26. GLUCOSAMINE [Concomitant]
     Active Substance: GLUCOSAMINE
     Indication: SUPPLEMENTATION THERAPY
     Dosage: 1500 MG
     Route: 048

REACTIONS (7)
  - Bladder neoplasm [Not Recovered/Not Resolved]
  - Groin pain [Not Recovered/Not Resolved]
  - Urinary bladder haemorrhage [Recovered/Resolved]
  - Calculus urinary [Not Recovered/Not Resolved]
  - Bladder neoplasm [Not Recovered/Not Resolved]
  - Limb discomfort [Not Recovered/Not Resolved]
  - Bladder neoplasm [Not Recovered/Not Resolved]

NARRATIVE: CASE EVENT DATE: 20131204
